FAERS Safety Report 20392070 (Version 1)
Quarter: 2022Q1

REPORT INFORMATION
  Report Type: Spontaneous
  Country: AR (occurrence: AR)
  Receive Date: 20220128
  Receipt Date: 20220128
  Transmission Date: 20220423
  Serious: Yes (Hospitalization)
  Sender: FDA-Public Use
  Company Number: AR-PFIZER INC-202200104439

PATIENT
  Age: 66 Year
  Sex: Female

DRUGS (2)
  1. IBRANCE [Suspect]
     Active Substance: PALBOCICLIB
     Indication: Breast cancer metastatic
     Dosage: 125 MG, CYCLIC (DAILY SCHEME 3X1)
     Dates: start: 20200916
  2. FULVESTRANT [Suspect]
     Active Substance: FULVESTRANT

REACTIONS (1)
  - Pulmonary oedema [Not Recovered/Not Resolved]

NARRATIVE: CASE EVENT DATE: 20210101
